FAERS Safety Report 6252460-1 (Version None)
Quarter: 2009Q3

REPORT INFORMATION
  Report Type: 
  Country: None (occurrence: None)
  Receive Date: 20090701
  Receipt Date: 20090626
  Transmission Date: 20100115
  Serious: Yes (Death, Congenital Anomaly)
  Sender: FDA-Public Use
  Company Number: US-BRISTOL-MYERS SQUIBB COMPANY-14089700

PATIENT
  Age: 5 Hour
  Sex: Male
  Weight: 3 kg

DRUGS (6)
  1. GLUCOVANCE [Suspect]
     Indication: DIABETES MELLITUS
     Route: 064
     Dates: end: 20070526
  2. REBIF [Suspect]
     Indication: MULTIPLE SCLEROSIS
     Route: 064
     Dates: start: 20060426, end: 20070526
  3. NEURONTIN [Suspect]
     Indication: PAIN
     Route: 064
     Dates: end: 20070526
  4. DITROPAN [Suspect]
     Indication: INCONTINENCE
     Route: 064
     Dates: end: 20070526
  5. PROVIGIL [Suspect]
     Indication: FATIGUE
     Route: 064
     Dates: end: 20070526
  6. CRESTOR [Suspect]
     Indication: BLOOD CHOLESTEROL INCREASED
     Route: 064
     Dates: end: 20070526

REACTIONS (7)
  - CONGENITAL MUSCULOSKELETAL ANOMALY [None]
  - DYSPLASIA [None]
  - LIMB MALFORMATION [None]
  - PULMONARY HYPOPLASIA [None]
  - RIB HYPOPLASIA [None]
  - SPINE MALFORMATION [None]
  - TALIPES [None]
